FAERS Safety Report 4339870-4 (Version None)
Quarter: 2004Q2

REPORT INFORMATION
  Report Type: 
  Country: None (occurrence: None)
  Receive Date: 20040412
  Receipt Date: 20040402
  Transmission Date: 20050107
  Serious: No
  Sender: FDA-Public Use
  Company Number: 24P-056-0255801-00

PATIENT
  Age: 50 Year
  Sex: Male

DRUGS (1)
  1. DEPAKENE [Suspect]
     Dosage: PER ORAL
     Route: 048
     Dates: start: 19890101

REACTIONS (1)
  - DUPUYTREN'S CONTRACTURE [None]
